FAERS Safety Report 8559961-1 (Version None)
Quarter: 2012Q3

REPORT INFORMATION
  Report Type: 
  Country: None (occurrence: None)
  Receive Date: 20120802
  Receipt Date: 20120724
  Transmission Date: 20120928
  Serious: Yes (Other)
  Sender: FDA-Public Use
  Company Number: US-JNJFOC-20120712431

PATIENT
  Sex: Female
  Weight: 49.9 kg

DRUGS (2)
  1. STELARA [Suspect]
     Indication: PSORIASIS
     Route: 058
     Dates: start: 20100101, end: 20100101
  2. STELARA [Suspect]
     Route: 058
     Dates: start: 20120717

REACTIONS (4)
  - PHARYNGITIS [None]
  - WEIGHT INCREASED [None]
  - TOOTHACHE [None]
  - DEVICE LEAKAGE [None]
